FAERS Safety Report 12653990 (Version 1)
Quarter: 2016Q3

REPORT INFORMATION
  Report Type: Spontaneous
  Country: US (occurrence: US)
  Receive Date: 20160816
  Receipt Date: 20160816
  Transmission Date: 20161109
  Serious: Yes (Life-Threatening)
  Sender: FDA-Public Use
  Company Number: US-HORIZON-PRE-0247-2016

PATIENT
  Age: 45 Year
  Sex: Female

DRUGS (1)
  1. PREDNISONE. [Suspect]
     Active Substance: PREDNISONE
     Indication: LARYNGITIS
     Dosage: 60 MG
     Route: 048

REACTIONS (1)
  - Phaeochromocytoma crisis [Unknown]
